FAERS Safety Report 18544941 (Version 3)
Quarter: 2021Q1

REPORT INFORMATION
  Report Type: Spontaneous
  Country: JP (occurrence: JP)
  Receive Date: 20201125
  Receipt Date: 20210108
  Transmission Date: 20210419
  Serious: Yes (Hospitalization)
  Sender: FDA-Public Use
  Company Number: JP-ALLERGAN-2044625US

PATIENT
  Sex: Female

DRUGS (20)
  1. PRANLUKAST [Concomitant]
     Active Substance: PRANLUKAST
     Dosage: UNK
  2. TIAPRIDE [Concomitant]
     Active Substance: TIAPRIDE
     Dosage: UNK
  3. VERAPAMIL [Concomitant]
     Active Substance: VERAPAMIL HYDROCHLORIDE
     Dosage: UNK
  4. SENNOSIDE [Concomitant]
     Active Substance: SENNOSIDES
     Dosage: UNK
  5. EDIROL [Concomitant]
     Active Substance: ELDECALCITOL
     Dosage: UNK
  6. LORAMET [Concomitant]
     Active Substance: LORMETAZEPAM
     Dosage: UNK
  7. TRIMEBUTINE [Concomitant]
     Active Substance: TRIMEBUTINE
     Dosage: UNK
  8. SHOKENCHUTO [Concomitant]
     Active Substance: HERBALS
     Dosage: UNK
  9. TAPIZOL [Concomitant]
     Active Substance: LANSOPRAZOLE
     Dosage: UNK
  10. PRAVASTATIN. [Concomitant]
     Active Substance: PRAVASTATIN
     Dosage: UNK
  11. FUROSEMIDE. [Concomitant]
     Active Substance: FUROSEMIDE
     Dosage: UNK
  12. LYRICA [Concomitant]
     Active Substance: PREGABALIN
     Dosage: UNK
  13. REBAMIPIDE [Concomitant]
     Active Substance: REBAMIPIDE
     Dosage: UNK
  14. MEMANTINE HCL ? BP [Suspect]
     Active Substance: MEMANTINE
     Indication: DEMENTIA
     Dosage: 20 MG, QD
     Route: 048
  15. PREDNISOLONE. [Concomitant]
     Active Substance: PREDNISOLONE
     Dosage: UNK
  16. DILTIAZEM. [Concomitant]
     Active Substance: DILTIAZEM
     Dosage: UNK
  17. ENALAPRIL [Concomitant]
     Active Substance: ENALAPRIL
     Dosage: UNK
  18. FEBURIC [Concomitant]
     Active Substance: FEBUXOSTAT
     Dosage: UNK
  19. ALOSENN [Concomitant]
     Dosage: UNK
  20. ISOSORBIDE DINITRATE. [Concomitant]
     Active Substance: ISOSORBIDE DINITRATE
     Dosage: UNK

REACTIONS (1)
  - Loss of consciousness [Not Recovered/Not Resolved]

NARRATIVE: CASE EVENT DATE: 20201110
